FAERS Safety Report 4832874-4 (Version None)
Quarter: 2005Q4

REPORT INFORMATION
  Report Type: 
  Country: None (occurrence: None)
  Receive Date: 20051121
  Receipt Date: 20001127
  Transmission Date: 20060501
  Serious: Yes (Life-Threatening, Hospitalization)
  Sender: FDA-Public Use
  Company Number: FR-GLAXOSMITHKLINE-B0242850A

PATIENT
  Age: 46 Year
  Sex: Male

DRUGS (2)
  1. AMOXICILLINE RPG [Suspect]
     Indication: NASOPHARYNGITIS
     Dosage: 1G PER DAY
     Route: 048
     Dates: start: 20001120, end: 20001120
  2. EFFERALGAN VITAMINE C [Concomitant]
     Indication: NASOPHARYNGITIS
     Route: 048
     Dates: start: 20001120, end: 20001120

REACTIONS (4)
  - ANAPHYLACTIC SHOCK [None]
  - CIRCULATORY COLLAPSE [None]
  - FALL [None]
  - FRACTURE [None]
